FAERS Safety Report 8442972-4 (Version None)
Quarter: 2012Q2

REPORT INFORMATION
  Report Type: 
  Country: None (occurrence: None)
  Receive Date: 20120615
  Receipt Date: 20120611
  Transmission Date: 20120825
  Serious: Yes (Death, Hospitalization, Other)
  Sender: FDA-Public Use
  Company Number: CA-ELI_LILLY_AND_COMPANY-CA201206003929

PATIENT
  Age: 85 Year
  Sex: Male

DRUGS (1)
  1. FORTEO [Suspect]
     Indication: OSTEOPOROSIS
     Dosage: 20 UG, QD
     Route: 058
     Dates: start: 20110410, end: 20120531

REACTIONS (7)
  - VOLUME BLOOD DECREASED [None]
  - FALL [None]
  - HEART VALVE INCOMPETENCE [None]
  - DEATH [None]
  - OXYGEN SATURATION DECREASED [None]
  - HAEMORRHAGE [None]
  - RENAL DISORDER [None]
